FAERS Safety Report 12997192 (Version 1)
Quarter: 2016Q4

REPORT INFORMATION
  Report Type: Spontaneous
  Country: DE (occurrence: DE)
  Receive Date: 20161205
  Receipt Date: 20161205
  Transmission Date: 20170207
  Serious: Yes (Hospitalization)
  Sender: FDA-Public Use
  Company Number: PHHY2016DE163229

PATIENT
  Age: 75 Year
  Sex: Male

DRUGS (5)
  1. CEFTRIAXONE. [Suspect]
     Active Substance: CEFTRIAXONE
     Indication: LUNG INFECTION
     Route: 065
  2. RITUXIMAB [Suspect]
     Active Substance: RITUXIMAB
     Indication: CHRONIC LYMPHOCYTIC LEUKAEMIA
     Route: 065
     Dates: start: 201310
  3. CLARITHROMYCIN. [Suspect]
     Active Substance: CLARITHROMYCIN
     Indication: LUNG INFECTION
     Route: 065
  4. MEROPENEM. [Suspect]
     Active Substance: MEROPENEM
     Indication: LUNG INFECTION
     Route: 065
  5. BENDAMUSTINE [Suspect]
     Active Substance: BENDAMUSTINE
     Indication: CHRONIC LYMPHOCYTIC LEUKAEMIA
     Route: 065
     Dates: start: 201310

REACTIONS (9)
  - Pain [Recovered/Resolved]
  - Nuchal rigidity [Recovered/Resolved]
  - Arthritis bacterial [Recovered/Resolved]
  - Drug ineffective [Unknown]
  - General physical condition abnormal [Recovered/Resolved]
  - Mobility decreased [Recovered/Resolved]
  - Klebsiella infection [Recovered/Resolved]
  - Decreased immune responsiveness [Recovered/Resolved]
  - Mycoplasma infection [Recovered/Resolved]

NARRATIVE: CASE EVENT DATE: 201312
